FAERS Safety Report 6825608-5 (Version None)
Quarter: 2010Q3

REPORT INFORMATION
  Report Type: 
  Country: None (occurrence: None)
  Receive Date: 20100708
  Receipt Date: 20070316
  Transmission Date: 20110219
  Serious: No
  Sender: FDA-Public Use
  Company Number: US-PFIZER INC-2007000981

PATIENT
  Age: 51 Year
  Sex: Female
  Weight: 82.6 kg

DRUGS (5)
  1. CHANTIX [Suspect]
     Indication: SMOKING CESSATION THERAPY
     Dates: start: 20061208
  2. SYNTHROID [Concomitant]
  3. ALLEGRA D 24 HOUR [Concomitant]
  4. MONTELUKAST SODIUM [Concomitant]
  5. BECONASE [Concomitant]

REACTIONS (4)
  - CONSTIPATION [None]
  - DECREASED APPETITE [None]
  - NAUSEA [None]
  - VOMITING [None]
